APPROVED DRUG PRODUCT: AMICAR
Active Ingredient: AMINOCAPROIC ACID
Strength: 500MG
Dosage Form/Route: TABLET;ORAL
Application: N015197 | Product #001 | TE Code: AB
Applicant: HIKMA PHARMACEUTICALS USA INC
Approved: Approved Prior to Jan 1, 1982 | RLD: Yes | RS: No | Type: RX